FAERS Safety Report 16037564 (Version 1)
Quarter: 2019Q1

REPORT INFORMATION
  Report Type: Spontaneous
  Country: US (occurrence: US)
  Receive Date: 20190305
  Receipt Date: 20190305
  Transmission Date: 20190418
  Serious: No
  Sender: FDA-Public Use
  Company Number: US-IMPAX LABORATORIES, LLC-2018-IPXL-03879

PATIENT
  Age: 75 Year
  Sex: Female

DRUGS (2)
  1. RYTARY [Suspect]
     Active Substance: CARBIDOPA\LEVODOPA
     Indication: PARKINSON^S DISEASE
     Dosage: 36.75/145MG, TWO CAPSULES, FOUR TIMES A DAY
     Route: 065
  2. RYTARY [Suspect]
     Active Substance: CARBIDOPA\LEVODOPA
     Dosage: 23.75/95 MG, TWO CAPSULES, FOUR TIMES A DAY
     Route: 065

REACTIONS (6)
  - Neck pain [Unknown]
  - Feeling abnormal [Unknown]
  - Adverse event [Unknown]
  - Back pain [Unknown]
  - Head discomfort [Unknown]
  - Drug effect incomplete [Unknown]
